FAERS Safety Report 5502462-5 (Version None)
Quarter: 2007Q4

REPORT INFORMATION
  Report Type: 
  Country: None (occurrence: None)
  Receive Date: 20071030
  Receipt Date: 20071025
  Transmission Date: 20080405
  Serious: Yes (Life-Threatening, Hospitalization, Disabling, Other)
  Sender: FDA-Public Use
  Company Number: US-GILEAD-2007-0013992

PATIENT
  Sex: Female
  Weight: 57.658 kg

DRUGS (8)
  1. TRUVADA [Suspect]
     Indication: HIV INFECTION
     Route: 065
     Dates: start: 20060901, end: 20070601
  2. ATENOLOL [Suspect]
     Route: 065
  3. LIPITOR [Concomitant]
     Route: 065
  4. ENALAPRIL MALEATE [Concomitant]
     Route: 065
  5. GLUCOPHAGE [Concomitant]
     Route: 065
  6. ZOCOR [Concomitant]
     Route: 065
  7. WELLBUTRIN [Concomitant]
     Route: 065
  8. GLUCOTROL [Concomitant]
     Route: 065

REACTIONS (2)
  - DEPENDENCE ON ENABLING MACHINE OR DEVICE [None]
  - RENAL FAILURE [None]
